FAERS Safety Report 7781269-2 (Version None)
Quarter: 2011Q3

REPORT INFORMATION
  Report Type: 
  Country: None (occurrence: None)
  Receive Date: 20110923
  Receipt Date: 20110914
  Transmission Date: 20111222
  Serious: Yes (Hospitalization, Disabling, Other)
  Sender: FDA-Public Use
  Company Number: 1000024079

PATIENT
  Sex: Male
  Weight: 3.42 kg

DRUGS (3)
  1. FOLIC ACID [Concomitant]
  2. CITALOPRAM HYDROBROMIDE [Suspect]
     Dosage: 40 MG (40 MG, 1 IN 1 D), TRANSPLACENTAL 30 MG (30 MG, 1 IN 1 D), TRANSPLACENTAL
     Route: 064
     Dates: end: 20100610
  3. CITALOPRAM HYDROBROMIDE [Suspect]
     Dosage: 40 MG (40 MG, 1 IN 1 D), TRANSPLACENTAL 30 MG (30 MG, 1 IN 1 D), TRANSPLACENTAL
     Route: 064
     Dates: start: 20100828

REACTIONS (5)
  - CONVULSION NEONATAL [None]
  - MYOCLONUS [None]
  - VENTOUSE EXTRACTION [None]
  - MATERNAL DRUGS AFFECTING FOETUS [None]
  - C-REACTIVE PROTEIN INCREASED [None]
